FAERS Safety Report 12531095 (Version 1)
Quarter: 2016Q3

REPORT INFORMATION
  Report Type: Spontaneous
  Country: GB (occurrence: GB)
  Receive Date: 20160706
  Receipt Date: 20160706
  Transmission Date: 20161109
  Serious: Yes (Other)
  Sender: FDA-Public Use
  Company Number: GB-TEVA-671538ACC

PATIENT
  Age: 20 Year
  Sex: Male

DRUGS (1)
  1. LAMOTRIGINE. [Suspect]
     Active Substance: LAMOTRIGINE
     Indication: PRODUCT USED FOR UNKNOWN INDICATION
     Dosage: 300 MILLIGRAM DAILY; 150 MG, BID
     Route: 065

REACTIONS (5)
  - Influenza like illness [Unknown]
  - Paraesthesia [Unknown]
  - Aggression [Unknown]
  - Seizure [Unknown]
  - Staring [Unknown]
